FAERS Safety Report 5346514-1 (Version None)
Quarter: 2007Q2

REPORT INFORMATION
  Report Type: 
  Country: None (occurrence: None)
  Receive Date: 20070605
  Receipt Date: 20070525
  Transmission Date: 20071010
  Serious: Yes (Hospitalization)
  Sender: FDA-Public Use
  Company Number: CA-AMGEN-US218382

PATIENT
  Sex: Female

DRUGS (16)
  1. ETANERCEPT [Suspect]
     Indication: RHEUMATOID ARTHRITIS
     Route: 058
     Dates: start: 20070221, end: 20070328
  2. HYDROXYCHLOROQUINE SULFATE [Concomitant]
     Route: 065
  3. LEFLUNOMIDE [Concomitant]
     Route: 065
  4. FLUTICASONE PROPIONATE [Concomitant]
     Route: 055
  5. ETIDRONATE DISODIUM [Concomitant]
     Route: 065
  6. TYLENOL [Concomitant]
     Route: 065
  7. SALBUTAMOL [Concomitant]
     Route: 065
  8. TYLENOL W/ CODEINE NO. 3 [Concomitant]
     Route: 065
  9. SPIRIVA [Concomitant]
     Route: 055
  10. FOLIC ACID [Concomitant]
     Route: 065
  11. PREVACID [Concomitant]
     Route: 065
  12. NAPROXEN [Concomitant]
     Route: 065
  13. FUROSEMIDE [Concomitant]
     Route: 065
  14. PARIET [Concomitant]
     Route: 065
  15. QVAR 40 [Concomitant]
     Route: 055
  16. DEXTROMETHORPHAN HYDROBROMIDE [Concomitant]
     Route: 065

REACTIONS (1)
  - LUNG DISORDER [None]
